FAERS Safety Report 20730624 (Version 1)
Quarter: 2022Q2

REPORT INFORMATION
  Report Type: Spontaneous
  Country: US (occurrence: None)
  Receive Date: 20220419
  Receipt Date: 20220419
  Transmission Date: 20220721
  Serious: Yes (Other)
  Sender: FDA-Public Use
  Company Number: None

PATIENT
  Sex: Male
  Weight: 85 kg

DRUGS (1)
  1. TIZANIDINE [Suspect]
     Active Substance: TIZANIDINE
     Indication: Pain
     Dosage: FREQUENCY : AS DIRECTED;?
     Route: 048
     Dates: start: 20220307, end: 20220307

REACTIONS (10)
  - Oxygen saturation decreased [None]
  - Pulse absent [None]
  - Depressed level of consciousness [None]
  - Hypotension [None]
  - Cardiac arrest [None]
  - Ventricular tachycardia [None]
  - Imaging procedure artifact [None]
  - Seizure [None]
  - Resuscitation [None]
  - Loss of consciousness [None]

NARRATIVE: CASE EVENT DATE: 20220308
